FAERS Safety Report 25730144 (Version 1)
Quarter: 2025Q3

REPORT INFORMATION
  Report Type: Other
  Country: EU (occurrence: EU)
  Receive Date: 20250827
  Receipt Date: 20250827
  Transmission Date: 20251020
  Serious: Yes (Hospitalization)
  Sender: ZYDUS PHARM
  Company Number: None

PATIENT

DRUGS (2)
  1. EXEMESTANE [Suspect]
     Active Substance: EXEMESTANE
     Indication: Breast cancer
     Route: 048
     Dates: start: 202411
  2. LYMECYCLINE [Suspect]
     Active Substance: LYMECYCLINE
     Indication: Rosacea
     Route: 048
     Dates: start: 202410, end: 20250527

REACTIONS (1)
  - Cerebral amyloid angiopathy [Recovering/Resolving]

NARRATIVE: CASE EVENT DATE: 20250624
